FAERS Safety Report 6168194-8 (Version None)
Quarter: 2009Q2

REPORT INFORMATION
  Report Type: 
  Country: None (occurrence: None)
  Receive Date: 20090427
  Receipt Date: 20090420
  Transmission Date: 20091009
  Serious: Yes (Other)
  Sender: FDA-Public Use
  Company Number: PHEH2007US01705

PATIENT
  Sex: Male

DRUGS (1)
  1. ZOMETA [Suspect]
     Indication: OSTEOPOROSIS
     Dosage: 4MG MONTHLY
     Route: 042

REACTIONS (9)
  - ANXIETY [None]
  - BONE DISORDER [None]
  - DECREASED INTEREST [None]
  - DEFORMITY [None]
  - EMOTIONAL DISTRESS [None]
  - GENERAL PHYSICAL HEALTH DETERIORATION [None]
  - HYPOPHAGIA [None]
  - OSTEONECROSIS [None]
  - PAIN [None]
